FAERS Safety Report 8237498-7 (Version None)
Quarter: 2012Q1

REPORT INFORMATION
  Report Type: 
  Country: None (occurrence: None)
  Receive Date: 20120323
  Receipt Date: 20120314
  Transmission Date: 20120608
  Serious: Yes (Other)
  Sender: FDA-Public Use
  Company Number: AUR-APL-2012-01427

PATIENT
  Age: 30 Year
  Sex: Male
  Weight: 78.64 kg

DRUGS (3)
  1. CIPROFLOXACIN [Suspect]
     Indication: URINARY TRACT INFECTION
     Dosage: 1000 MG (500 MG, 2 IN 1 D), ORAL, ORAL
     Route: 048
     Dates: start: 20120217, end: 20120229
  2. CIPROFLOXACIN [Suspect]
     Indication: URINARY TRACT INFECTION
     Dosage: 1000 MG (500 MG, 2 IN 1 D), ORAL, ORAL
     Route: 048
     Dates: end: 20100101
  3. DOXYCYCLINE [Concomitant]

REACTIONS (1)
  - OPTIC NEURITIS [None]
